FAERS Safety Report 24638081 (Version 1)
Quarter: 2024Q4

REPORT INFORMATION
  Report Type: Spontaneous
  Country: US (occurrence: US)
  Receive Date: 20241119
  Receipt Date: 20241119
  Transmission Date: 20250114
  Serious: No
  Sender: MYLAN
  Company Number: US-MYLANLABS-2024M1102058

PATIENT

DRUGS (1)
  1. ESTRADIOL TRANSDERMAL SYSTEM [Suspect]
     Active Substance: ESTRADIOL
     Indication: Product used for unknown indication
     Dosage: 0.05 MILLIGRAM, QD (PER DAY, TWICE WEEKLY)
     Route: 062

REACTIONS (6)
  - Application site bruise [Unknown]
  - Application site pain [Unknown]
  - Application site rash [Unknown]
  - Application site pruritus [Unknown]
  - Therapeutic response decreased [Unknown]
  - Product substitution issue [Unknown]
